FAERS Safety Report 9032192 (Version 1)
Quarter: 2013Q1

REPORT INFORMATION
  Report Type: Spontaneous
  Country: CH (occurrence: CH)
  Receive Date: 20130122
  Receipt Date: 20130122
  Transmission Date: 20140127
  Serious: Yes (Hospitalization)
  Sender: FDA-Public Use
  Company Number: CH-PFIZER INC-2013024305

PATIENT
  Age: 86 Year
  Sex: Male

DRUGS (9)
  1. AMIODARONE HCL [Suspect]
     Indication: ATRIAL FIBRILLATION
     Dosage: 200 MG, DAILY
     Route: 048
     Dates: start: 201210, end: 20121212
  2. AMIODARONE HCL [Interacting]
     Indication: ATRIAL FLUTTER
  3. DIGOXIN [Interacting]
     Indication: ATRIAL FIBRILLATION
     Dosage: 0.125 MG, DAILY
     Route: 048
     Dates: start: 201210, end: 20121212
  4. DIGOXIN [Interacting]
     Indication: ATRIAL FLUTTER
  5. MARCOUMAR [Interacting]
     Indication: ATRIAL FIBRILLATION
     Dosage: 3 MG, AS NEEDED
     Route: 048
     Dates: end: 20121212
  6. MARCOUMAR [Interacting]
     Indication: ATRIAL FLUTTER
  7. PRADIF [Concomitant]
     Dosage: UNK
  8. PANTOZOL [Concomitant]
     Dosage: UNK
  9. TORASEMIDE [Concomitant]
     Dosage: UNK
     Dates: end: 201212

REACTIONS (9)
  - Drug interaction [Unknown]
  - Cardioactive drug level increased [Not Recovered/Not Resolved]
  - Adams-Stokes syndrome [Recovered/Resolved]
  - Atrioventricular block [Recovered/Resolved]
  - Supraventricular tachycardia [Recovered/Resolved]
  - Renal failure acute [Recovering/Resolving]
  - Hypovolaemia [Recovered/Resolved]
  - Haemorrhage [Recovered/Resolved]
  - Hyperthyroidism [Unknown]
